FAERS Safety Report 22751233 (Version 4)
Quarter: 2023Q4

REPORT INFORMATION
  Report Type: Spontaneous
  Country: ES (occurrence: ES)
  Receive Date: 20230726
  Receipt Date: 20231017
  Transmission Date: 20240109
  Serious: Yes (Other)
  Sender: FDA-Public Use
  Company Number: ES-Accord-365213

PATIENT
  Age: 62 Year
  Sex: Female
  Weight: 90 kg

DRUGS (27)
  1. QUETIAPINE [Interacting]
     Active Substance: QUETIAPINE
     Indication: Personality disorder
     Dosage: USED DOSAGE OF 0-0-1-0
  2. ALPRAZOLAM [Interacting]
     Active Substance: ALPRAZOLAM
     Indication: Personality disorder
     Dosage: USED DOSAGE OF 0-0-1-0
  3. LORMETAZEPAM [Interacting]
     Active Substance: LORMETAZEPAM
     Indication: Personality disorder
     Dosage: USED DOSAGE OF 0-0-0-1
  4. PIMOZIDE [Interacting]
     Active Substance: PIMOZIDE
     Indication: Personality disorder
     Dosage: USED DOSAGE OF 0-0-1-0
  5. KETAZOLAM [Interacting]
     Active Substance: KETAZOLAM
     Indication: Hallucination
     Dosage: USED DOSAGE OF 0-0-0-1
     Dates: start: 2016
  6. GABAPENTIN [Interacting]
     Active Substance: GABAPENTIN
     Indication: Personality disorder
     Dosage: USED DOSAGE OF 1-1-1-0
     Dates: start: 2019
  7. AMISULPRIDE [Concomitant]
     Active Substance: AMISULPRIDE
     Indication: Personality disorder
     Dosage: USED DOSAGE OF 0-0-0-0.5
  8. VORTIOXETINE [Concomitant]
     Active Substance: VORTIOXETINE
     Indication: Personality disorder
     Dosage: USED DOSAGE OF 1-0-0-0
  9. METFORMIN [Concomitant]
     Active Substance: METFORMIN HYDROCHLORIDE
     Indication: Diabetes mellitus
     Dosage: USED DOSAGE OF 1-0-1-0
     Dates: start: 2010
  10. EMPAGLIFLOZIN [Concomitant]
     Active Substance: EMPAGLIFLOZIN
     Indication: Diabetes mellitus
     Dosage: USED DOSAGE OF 1-0-1-0
     Dates: start: 2010
  11. LIRAGLUTIDE [Concomitant]
     Active Substance: LIRAGLUTIDE
     Indication: Diabetes mellitus
     Dosage: 6 MG/ML USED DOSAGE OF 1 EVERY 7 DAYS
     Dates: start: 2010
  12. VALSARTAN [Concomitant]
     Active Substance: VALSARTAN
     Indication: Hypertension
     Dosage: USED DOSAGE OF 1-0-0-0
     Dates: start: 2014
  13. MANIDIPINE HYDROCHLORIDE [Concomitant]
     Active Substance: MANIDIPINE HYDROCHLORIDE
     Indication: Hypertension
     Dosage: USED DOSAGE OF 0-0-2-0
     Dates: start: 2014
  14. FUROSEMIDE [Concomitant]
     Active Substance: FUROSEMIDE
     Indication: Hypertension
     Dosage: USED DOSAGE OF 1-0.5-0-0, 40 MG
     Dates: start: 2014
  15. ATORVASTATIN [Concomitant]
     Active Substance: ATORVASTATIN
     Indication: Hypercholesterolaemia
     Dosage: USED DOSAGE OF 0-0-1-0
     Dates: start: 2015
  16. PANTOPRAZOLE [Concomitant]
     Active Substance: PANTOPRAZOLE
     Indication: Gastrooesophageal reflux disease
     Dosage: USED DOSAGE OF 1-0-0-0
     Dates: start: 2016
  17. CALCIFEDIOL [Concomitant]
     Active Substance: CALCIFEDIOL
     Indication: Vitamin D deficiency
     Dosage: USED DOSAGE OF ONE EVERY MONTH
     Dates: start: 2021
  18. TRAMADOL [Concomitant]
     Active Substance: TRAMADOL\TRAMADOL HYDROCHLORIDE
     Indication: Arthralgia
     Dosage: USED DOSAGE OF 1-1-1-0
     Dates: start: 2019
  19. ACETAMINOPHEN [Concomitant]
     Active Substance: ACETAMINOPHEN
     Indication: Arthralgia
     Dosage: USED DOSAGE OF 1-1-1-0
     Dates: start: 2019
  20. PRAMIPEXOLE [Concomitant]
     Active Substance: PRAMIPEXOLE
     Indication: Tremor
     Dosage: USED DOSAGE OF 1-0-0-0
  21. ALBUTEROL [Concomitant]
     Active Substance: ALBUTEROL
     Indication: Chronic obstructive pulmonary disease
     Dosage: 100 MCG/PUL ON DEMAND
     Dates: start: 2016
  22. INDACATEROL [Concomitant]
     Active Substance: INDACATEROL
     Indication: Chronic obstructive pulmonary disease
     Dosage: AT A DOSAGE OF 1 EVERY 24 HOURS
     Dates: start: 2016
  23. GLYCOPYRROLATE [Concomitant]
     Active Substance: GLYCOPYRROLATE
     Indication: Chronic obstructive pulmonary disease
     Dosage: AT A DOSAGE OF 1 EVERY 24 HOURS
     Dates: start: 2016
  24. CLOPIDOGREL [Concomitant]
     Active Substance: CLOPIDOGREL BISULFATE
     Indication: Cerebrovascular accident
     Dosage: USED DOSAGE OF 0-1-0-0
     Dates: start: 2018
  25. TRAMADOL [Concomitant]
     Active Substance: TRAMADOL\TRAMADOL HYDROCHLORIDE
     Indication: Arthralgia
     Dosage: 100 MG/ML ON DEMAND
     Dates: start: 2019
  26. GABAPENTIN [Interacting]
     Active Substance: GABAPENTIN
     Indication: Arthralgia
     Dosage: 300 MILLIGRAM, 3 TIMES A DAY (1-1-1-0)
     Dates: start: 2019
  27. QUETIAPINE [Interacting]
     Active Substance: QUETIAPINE
     Indication: Personality disorder
     Dosage: .5 MILLIGRAM DAILY

REACTIONS (9)
  - Somnolence [Recovered/Resolved]
  - Hypoglycaemia [Recovered/Resolved]
  - Parkinsonism [Recovered/Resolved]
  - Hypotension [Recovered/Resolved]
  - Hallucination [Recovered/Resolved]
  - Off label use [Unknown]
  - Drug interaction [Unknown]
  - Hyperhidrosis [Recovered/Resolved]
  - Tachycardia [Recovered/Resolved]
